FAERS Safety Report 13932531 (Version 2)
Quarter: 2017Q4

REPORT INFORMATION
  Report Type: Spontaneous
  Country: GB (occurrence: GB)
  Receive Date: 20170904
  Receipt Date: 20171211
  Transmission Date: 20180320
  Serious: Yes (Hospitalization, Other)
  Sender: FDA-Public Use
  Company Number: GB-ACCORD-057880

PATIENT
  Sex: Male

DRUGS (3)
  1. TRAMADOL/TRAMADOL HYDROCHLORIDE [Suspect]
     Active Substance: TRAMADOL HYDROCHLORIDE
     Indication: PAIN
     Route: 048
     Dates: end: 2015
  2. MIRTAZAPINE. [Concomitant]
     Active Substance: MIRTAZAPINE
     Indication: DEPRESSION
     Route: 048
  3. PREGABALIN. [Suspect]
     Active Substance: PREGABALIN
     Route: 048

REACTIONS (12)
  - Drug abuse [Unknown]
  - Intentional overdose [Unknown]
  - Blood pressure systolic increased [None]
  - C-reactive protein increased [None]
  - Intentional overdose [None]
  - Seizure [Not Recovered/Not Resolved]
  - Wound haemorrhage [None]
  - Blood cholesterol increased [None]
  - Circulatory collapse [Recovered/Resolved]
  - Nasal injury [None]
  - Heart rate irregular [Not Recovered/Not Resolved]
  - Fatigue [Unknown]

NARRATIVE: CASE EVENT DATE: 2015
